FAERS Safety Report 5706595-X (Version None)
Quarter: 2008Q2

REPORT INFORMATION
  Report Type: 
  Country: None (occurrence: None)
  Receive Date: 20080415
  Receipt Date: 20080401
  Transmission Date: 20081010
  Serious: Yes (Other)
  Sender: FDA-Public Use
  Company Number: US-ELI_LILLY_AND_COMPANY-US200709001997

PATIENT
  Sex: Female

DRUGS (2)
  1. CYMBALTA [Suspect]
     Indication: FEELING ABNORMAL
     Dates: start: 20060101
  2. UNIRETIC [Concomitant]
     Indication: HYPERTENSION

REACTIONS (2)
  - HEPATIC STEATOSIS [None]
  - HEPATOCELLULAR INJURY [None]
